FAERS Safety Report 7301372-0 (Version None)
Quarter: 2011Q1

REPORT INFORMATION
  Report Type: 
  Country: None (occurrence: None)
  Receive Date: 20110218
  Receipt Date: 20110204
  Transmission Date: 20110831
  Serious: Yes (Other)
  Sender: FDA-Public Use
  Company Number: PHHY2011JP05304

PATIENT
  Age: 48 Year
  Sex: Female

DRUGS (12)
  1. LANDEL [Concomitant]
     Dosage: 20 MG, DAILY
     Dates: start: 20110119
  2. GRANDAXIN [Suspect]
     Dosage: 100 MG, QD
  3. MECOBALAMIN [Suspect]
     Route: 048
  4. KAMISHOUYOUSAN [Suspect]
     Dosage: 5 MG, UNK
     Dates: start: 20110126
  5. EXFORGE [Suspect]
     Indication: HYPERTENSION
     Dosage: 1 DF, QD, DAILY
     Route: 048
     Dates: start: 20101214, end: 20110118
  6. EXFORGE [Suspect]
     Dosage: UNK
  7. NEO-MINOPHAGEN C [Concomitant]
     Dosage: 01 A, UNK
     Route: 042
     Dates: end: 20100626
  8. KAMISHOUYOUSAN [Suspect]
     Dosage: 7.5 G, DAILY
     Dates: start: 20101214, end: 20110118
  9. TSUMURA [Suspect]
     Dosage: UNK
  10. OLMETEC [Concomitant]
     Dosage: 20 MG, DAILY
     Dates: start: 20110119
  11. KAKKON-TO [Suspect]
     Dosage: 7.5 G, DAILY
     Dates: start: 20101214, end: 20110118
  12. KAKKON-TO [Suspect]
     Dosage: 05 G, (TWO DIVIDED DOSES)
     Dates: start: 20110126

REACTIONS (1)
  - HEPATIC FUNCTION ABNORMAL [None]
